FAERS Safety Report 5221280-9 (Version None)
Quarter: 2007Q1

REPORT INFORMATION
  Report Type: 
  Country: None (occurrence: None)
  Receive Date: 20070126
  Receipt Date: 20070116
  Transmission Date: 20070707
  Serious: Yes (Hospitalization)
  Sender: FDA-Public Use
  Company Number: ESWYE474209NOV06

PATIENT
  Age: 43 Year
  Sex: Male

DRUGS (4)
  1. ENBREL [Suspect]
     Indication: PSORIATIC ARTHROPATHY
     Route: 058
     Dates: start: 20060901, end: 20061102
  2. INSULIN [Concomitant]
     Indication: DIABETES MELLITUS INSULIN-DEPENDENT
     Dosage: UNKNOWN
  3. CORTICOSTEROID NOS [Concomitant]
     Dosage: LOW DOSE
     Route: 061
  4. TRAMADOL HCL [Concomitant]
     Route: 048

REACTIONS (6)
  - ASCITES [None]
  - CONDITION AGGRAVATED [None]
  - DRUG INEFFECTIVE [None]
  - ENCEPHALOPATHY [None]
  - HEPATIC CIRRHOSIS [None]
  - PSORIASIS [None]
